FAERS Safety Report 13145567 (Version 1)
Quarter: 2017Q1

REPORT INFORMATION
  Report Type: Spontaneous
  Country: GB (occurrence: GB)
  Receive Date: 20170124
  Receipt Date: 20170124
  Transmission Date: 20170428
  Serious: Yes (Hospitalization)
  Sender: FDA-Public Use
  Company Number: GB-SA-2017SA009698

PATIENT
  Age: 77 Year
  Sex: Female

DRUGS (4)
  1. INDAPAMIDE. [Suspect]
     Active Substance: INDAPAMIDE
     Indication: HYPERTENSION
     Route: 048
  2. INDAPAMIDE. [Suspect]
     Active Substance: INDAPAMIDE
     Indication: HYPERTENSION
     Route: 048
     Dates: end: 20161223
  3. WARFARIN [Concomitant]
     Active Substance: WARFARIN
  4. MOXONIDINE [Concomitant]
     Active Substance: MOXONIDINE

REACTIONS (2)
  - Fall [Unknown]
  - Hyponatraemia [Recovering/Resolving]

NARRATIVE: CASE EVENT DATE: 20161223
